FAERS Safety Report 15159491 (Version 1)
Quarter: 2018Q3

REPORT INFORMATION
  Report Type: Report from Study
  Country: CA (occurrence: CA)
  Receive Date: 20180718
  Receipt Date: 20180718
  Transmission Date: 20181010
  Serious: Yes (Other)
  Sender: FDA-Public Use
  Company Number: CA-JNJFOC-20180130704

PATIENT
  Age: 31 Year
  Sex: Female
  Weight: 58.1 kg

DRUGS (1)
  1. REMICADE [Suspect]
     Active Substance: INFLIXIMAB
     Indication: ANKYLOSING SPONDYLITIS
     Dosage: STRENGTH = 100 MG
     Route: 042
     Dates: start: 20140115

REACTIONS (6)
  - Back pain [Not Recovered/Not Resolved]
  - Drug effect decreased [Unknown]
  - Abdominal pain lower [Not Recovered/Not Resolved]
  - Pelvic pain [Not Recovered/Not Resolved]
  - Systemic lupus erythematosus [Unknown]
  - Abdominal distension [Not Recovered/Not Resolved]

NARRATIVE: CASE EVENT DATE: 201712
